FAERS Safety Report 4295113-1 (Version None)
Quarter: 2004Q1

REPORT INFORMATION
  Report Type: 
  Country: None (occurrence: None)
  Receive Date: 20040211
  Receipt Date: 20040204
  Transmission Date: 20041129
  Serious: Yes (Hospitalization)
  Sender: FDA-Public Use
  Company Number: NSADSS2003009019

PATIENT
  Age: 67 Year
  Sex: Female

DRUGS (16)
  1. REMICADE [Suspect]
     Indication: RHEUMATOID ARTHRITIS
     Dosage: 1 IN 1 AS NECESSARY, INTRAVENOUS DRIP
     Route: 041
     Dates: start: 20000815, end: 20000815
  2. REMICADE [Suspect]
     Indication: RHEUMATOID ARTHRITIS
     Dosage: 1 IN 1 AS NECESSARY, INTRAVENOUS DRIP
     Route: 041
     Dates: start: 20020826, end: 20020826
  3. PREDNISONE [Concomitant]
  4. LOPRESSOR [Concomitant]
  5. LIPITOR [Concomitant]
  6. SYNOVAC (ALL OTHER THERAPEUTIC PRODUCTS) [Concomitant]
  7. COZAAR [Concomitant]
  8. CELEBREX [Concomitant]
  9. EVISTA [Concomitant]
  10. FOSAMAX [Concomitant]
  11. QUININE SULFATE [Concomitant]
  12. NEURONTIN [Concomitant]
  13. AVANDIA [Concomitant]
  14. FOLIC ACID [Concomitant]
  15. ALLOPURINOL [Concomitant]
  16. METHOTREXATE [Concomitant]

REACTIONS (9)
  - CONDITION AGGRAVATED [None]
  - CONFUSIONAL STATE [None]
  - DEHYDRATION [None]
  - ENTEROCOCCAL INFECTION [None]
  - HYPOGLYCAEMIA [None]
  - NEPHROLITHIASIS [None]
  - PROTEUS INFECTION [None]
  - RHEUMATOID ARTHRITIS [None]
  - UROSEPSIS [None]
